FAERS Safety Report 19216302 (Version 1)
Quarter: 2021Q2

REPORT INFORMATION
  Report Type: Spontaneous
  Country: US (occurrence: US)
  Receive Date: 20210504
  Receipt Date: 20210504
  Transmission Date: 20210717
  Serious: Yes (Hospitalization)
  Sender: FDA-Public Use
  Company Number: None

PATIENT
  Sex: Male

DRUGS (1)
  1. TASIGNA [Suspect]
     Active Substance: NILOTINIB
     Indication: CHRONIC MYELOID LEUKAEMIA
     Dosage: OTHER FREQUENCY:EVERY 12 HOURS;?
     Route: 048
     Dates: start: 20180208

REACTIONS (2)
  - Intentional dose omission [None]
  - Hospitalisation [None]
